FAERS Safety Report 9808791 (Version 1)
Quarter: 2014Q1

REPORT INFORMATION
  Report Type: Spontaneous
  Country: US (occurrence: US)
  Receive Date: 20140110
  Receipt Date: 20140110
  Transmission Date: 20141002
  Serious: Yes (Death)
  Sender: FDA-Public Use
  Company Number: US-ASTRAZENECA-2014SE01460

PATIENT
  Age: 21 Year
  Sex: Male

DRUGS (8)
  1. QUETIAPINE [Suspect]
     Route: 048
  2. ARIPIPRAZOLE [Suspect]
     Route: 048
  3. CLONAZEPAM [Suspect]
     Route: 048
  4. VENLAFAXINE [Suspect]
     Route: 048
  5. METHADONE [Suspect]
     Route: 048
  6. OXYCODONE [Suspect]
     Route: 048
  7. ACETAMINOPHEN/HYDROCODONE [Suspect]
     Route: 048
  8. CITALOPRAM [Suspect]
     Route: 048

REACTIONS (2)
  - Toxicity to various agents [Fatal]
  - Cardio-respiratory arrest [Fatal]
